FAERS Safety Report 8365793-X (Version None)
Quarter: 2012Q2

REPORT INFORMATION
  Report Type: 
  Country: None (occurrence: None)
  Receive Date: 20120517
  Receipt Date: 20120510
  Transmission Date: 20120825
  Serious: Yes (Hospitalization, Other)
  Sender: FDA-Public Use
  Company Number: US-AMGEN-USASP2012011260

PATIENT
  Age: 71 Year
  Sex: Male
  Weight: 101.6 kg

DRUGS (17)
  1. METAMUCIL                          /00029101/ [Concomitant]
  2. DILTIAZEM [Concomitant]
     Dosage: 60 MG, TID
  3. METOPROLOL TARTRATE [Concomitant]
     Dosage: 50 MG, QD
  4. CRESTOR [Concomitant]
     Dosage: 10 MG, QD
  5. VITAMIN D [Concomitant]
  6. NEURONTIN [Concomitant]
     Indication: NEURALGIA
     Dosage: 300 MG, BID
  7. MULTIVITAMIN                       /00097801/ [Concomitant]
  8. COUMADIN [Concomitant]
  9. VITAMIN C                          /00008001/ [Concomitant]
  10. SPIRIVA [Concomitant]
     Dosage: 18 MUG, QD
  11. DILANTIN [Concomitant]
     Dosage: 5.5 DF, Q12H
     Route: 048
  12. LIDODERM [Concomitant]
     Dosage: UNK UNK, PRN
     Route: 061
  13. LISINOPRIL [Concomitant]
     Dosage: 10 MG, QD
  14. ZOLOFT [Concomitant]
     Indication: DEPRESSION
     Dosage: 50 MG, UNK
  15. TYLENOL (CAPLET) [Concomitant]
     Dosage: 650 MG, PRN
     Route: 048
  16. NPLATE [Suspect]
     Indication: IDIOPATHIC THROMBOCYTOPENIC PURPURA
     Dosage: 200 MUG, Q2WK
     Route: 058
     Dates: start: 20090817, end: 20120109
  17. PROTONIX [Concomitant]
     Dosage: 40 MG, UNK

REACTIONS (12)
  - CAROTID ARTERY THROMBOSIS [None]
  - NEUROGENIC BLADDER [None]
  - DEPRESSION [None]
  - CEREBROVASCULAR ACCIDENT [None]
  - NEURALGIA [None]
  - CAROTID ARTERY STENOSIS [None]
  - PNEUMONIA ASPIRATION [None]
  - SEPSIS [None]
  - MICTURITION URGENCY [None]
  - EMBOLISM ARTERIAL [None]
  - RESPIRATORY FAILURE [None]
  - ATRIAL FIBRILLATION [None]
